FAERS Safety Report 23581486 (Version 1)
Quarter: 2024Q1

REPORT INFORMATION
  Report Type: Spontaneous
  Country: CN (occurrence: CN)
  Receive Date: 20240229
  Receipt Date: 20240229
  Transmission Date: 20240409
  Serious: Yes (Other)
  Sender: FDA-Public Use
  Company Number: CN-009507513-2402CHN008528

PATIENT
  Age: 65 Year
  Sex: Male

DRUGS (3)
  1. KEYTRUDA [Suspect]
     Active Substance: PEMBROLIZUMAB
     Indication: Lung neoplasm
     Dosage: 200 MG, ONCE
     Route: 041
     Dates: start: 20240206, end: 20240206
  2. CARBOPLATIN [Suspect]
     Active Substance: CARBOPLATIN
     Indication: Lung neoplasm
     Dosage: 400 MG, ONCE
     Route: 041
     Dates: start: 20240206, end: 20240206
  3. PACLITAXEL [Suspect]
     Active Substance: PACLITAXEL
     Indication: Lung neoplasm
     Dosage: 400 MG, ONCE
     Route: 041
     Dates: start: 20240206, end: 20240206

REACTIONS (6)
  - Myelosuppression [Recovered/Resolved]
  - White blood cell count decreased [Unknown]
  - Neutrophil count decreased [Unknown]
  - Platelet count abnormal [Unknown]
  - Haemoglobin abnormal [Unknown]
  - Granulocyte count decreased [Unknown]

NARRATIVE: CASE EVENT DATE: 20240201
